FAERS Safety Report 9363194 (Version 1)
Quarter: 2013Q2

REPORT INFORMATION
  Report Type: Spontaneous
  Country: US (occurrence: US)
  Receive Date: 20130624
  Receipt Date: 20130624
  Transmission Date: 20140414
  Serious: No
  Sender: FDA-Public Use
  Company Number: US-BIOGENIDEC-2013BI055899

PATIENT
  Age: 44 Year
  Sex: Female

DRUGS (1)
  1. AVONEX [Suspect]
     Indication: MULTIPLE SCLEROSIS
     Route: 030
     Dates: start: 20130209

REACTIONS (4)
  - Influenza [Recovered/Resolved]
  - Dizziness [Recovered/Resolved]
  - Pain [Recovered/Resolved]
  - Headache [Recovered/Resolved]
